FAERS Safety Report 9412203 (Version 2)
Quarter: 2013Q3

REPORT INFORMATION
  Report Type: Spontaneous
  Country: US (occurrence: US)
  Receive Date: 20130722
  Receipt Date: 20130912
  Transmission Date: 20140515
  Serious: Yes (Life-Threatening, Hospitalization, Other)
  Sender: FDA-Public Use
  Company Number: US-ROCHE-1251241

PATIENT
  Age: 60 Year
  Sex: Male
  Weight: 72.98 kg

DRUGS (22)
  1. ACTEMRA [Suspect]
     Indication: RHEUMATOID ARTHRITIS
     Dosage: 600 MG TOTAL MONTHLY DOSE
     Route: 042
     Dates: start: 20110713
  2. AMLODIPINE BESYLATE [Concomitant]
     Route: 048
  3. ASTELIN [Concomitant]
     Route: 045
  4. CALCIUM CITRATE [Concomitant]
     Route: 048
  5. DOXYCYCLINE HYCLATE [Concomitant]
     Route: 048
  6. FERROUS GLUCONATE [Concomitant]
     Route: 048
  7. FINACEA [Concomitant]
     Dosage: 15% EXTERNAL APPLY
     Route: 065
  8. FLAXSEED OIL [Concomitant]
     Route: 048
  9. FOLIC ACID [Concomitant]
     Route: 048
  10. IMODIUM A-D [Concomitant]
     Dosage: 1/2 ORAL DAILY
     Route: 048
  11. MEDROL DOSEPAK [Concomitant]
     Dosage: AS DIRCTED ONE PACK
     Route: 048
  12. NAPROXEN [Concomitant]
     Route: 048
  13. OMEPRAZOLE [Concomitant]
     Dosage: 1 30 MIN. BEFORE MEALS
     Route: 048
  14. PLAQUENIL [Concomitant]
     Route: 048
  15. PRAVACHOL [Concomitant]
     Route: 048
  16. PREDNISONE [Concomitant]
     Dosage: TAKE ONE BY MOUTH IN THE MORNING OR AS DIRECTED BY PHYSICIAN
     Route: 048
  17. REQUIP [Concomitant]
     Route: 048
  18. SINGULAIR [Concomitant]
     Route: 048
  19. VITAMIN B12 [Concomitant]
     Route: 048
  20. VITAMIN B6 [Concomitant]
     Route: 048
  21. VITAMIN D3 [Concomitant]
     Dosage: 1000 UNITS ORAL 2000 UNITS DAILY
     Route: 048
  22. ZOLOFT [Concomitant]
     Route: 048

REACTIONS (3)
  - Intracranial aneurysm [Recovered/Resolved]
  - Meningitis bacterial [Recovered/Resolved]
  - Neutropenia [Not Recovered/Not Resolved]
